FAERS Safety Report 12390115 (Version 3)
Quarter: 2016Q3

REPORT INFORMATION
  Report Type: Spontaneous
  Country: CN (occurrence: CN)
  Receive Date: 20160520
  Receipt Date: 20160729
  Transmission Date: 20161109
  Serious: Yes (Hospitalization)
  Sender: FDA-Public Use
  Company Number: CN-ASTRAZENECA-2016SE44567

PATIENT
  Sex: Male

DRUGS (4)
  1. CASODEX [Suspect]
     Active Substance: BICALUTAMIDE
     Indication: NEOPLASM PROSTATE
     Route: 048
     Dates: start: 201102
  2. CASODEX [Suspect]
     Active Substance: BICALUTAMIDE
     Indication: NEOPLASM PROSTATE
     Route: 048
     Dates: start: 201604
  3. CASODEX [Suspect]
     Active Substance: BICALUTAMIDE
     Indication: NEOPLASM PROSTATE
     Dosage: BICALUTAMIDE MANUFACTURED IN SHANXI VIA PRESCRIPTION
     Route: 048
     Dates: start: 201011
  4. ESTRACYT [Concomitant]
     Active Substance: ESTRAMUSTINE PHOSPHATE SODIUM
     Dates: start: 20160527

REACTIONS (7)
  - Emphysema [Not Recovered/Not Resolved]
  - Blood disorder [Not Recovered/Not Resolved]
  - Oedema peripheral [Unknown]
  - Decreased appetite [Unknown]
  - Skin exfoliation [Unknown]
  - Dyspnoea [Unknown]
  - Nausea [Unknown]
